FAERS Safety Report 15270055 (Version 3)
Quarter: 2018Q3

REPORT INFORMATION
  Report Type: Spontaneous
  Country: US (occurrence: US)
  Receive Date: 20180813
  Receipt Date: 20180910
  Transmission Date: 20181010
  Serious: No
  Sender: FDA-Public Use
  Company Number: US-PFIZER INC-2018320794

PATIENT
  Age: 64 Year
  Sex: Female
  Weight: 56 kg

DRUGS (6)
  1. FOSTEUM PLUS [Concomitant]
     Dosage: UNK, 2X/DAY
     Route: 048
  2. ESTRING [Suspect]
     Active Substance: ESTRADIOL
     Indication: URINARY TRACT INFECTION
     Dosage: UNK
  3. AMOXICILLIN. [Concomitant]
     Active Substance: AMOXICILLIN
     Dosage: UNK
     Dates: start: 20180608, end: 20180614
  4. AMOXICILLIN. [Concomitant]
     Active Substance: AMOXICILLIN
     Dosage: UNK
     Dates: start: 20180628, end: 20180704
  5. ESTRING [Suspect]
     Active Substance: ESTRADIOL
     Indication: VULVOVAGINAL DRYNESS
     Dosage: 2 MG, EVERY 3 MONTHS [INSERT ONE RING VAGINALLY EVERY 3 MONTHS/ 2MG RING EVERY 90 DAYS]
     Route: 067
     Dates: start: 20180718
  6. FOSTEUM PLUS [Concomitant]
     Dosage: UNK, 2X/DAY
     Route: 048

REACTIONS (3)
  - Vulvovaginal dryness [Recovered/Resolved]
  - Intentional product misuse [Unknown]
  - Drug ineffective [Recovered/Resolved]

NARRATIVE: CASE EVENT DATE: 20180718
